FAERS Safety Report 8364529-6 (Version None)
Quarter: 2012Q2

REPORT INFORMATION
  Report Type: 
  Country: None (occurrence: None)
  Receive Date: 20120516
  Receipt Date: 20120508
  Transmission Date: 20120825
  Serious: Yes (Hospitalization, Disabling)
  Sender: FDA-Public Use
  Company Number: US-MERCK-1202USA02446

PATIENT
  Age: 46 Year
  Sex: Female
  Weight: 44 kg

DRUGS (2)
  1. FOSAMAX [Suspect]
     Indication: OSTEOPENIA
     Route: 048
     Dates: start: 19950101, end: 20080401
  2. VITAMINS (UNSPECIFIED) [Concomitant]
     Route: 065
     Dates: start: 19840101

REACTIONS (33)
  - FEMUR FRACTURE [None]
  - PHARYNGITIS [None]
  - MUSCLE STRAIN [None]
  - BUNDLE BRANCH BLOCK RIGHT [None]
  - SEDATION [None]
  - ANXIETY [None]
  - APPENDIX DISORDER [None]
  - CONSTIPATION [None]
  - DEPRESSION [None]
  - DRUG HYPERSENSITIVITY [None]
  - INTERVERTEBRAL DISC DEGENERATION [None]
  - LOW TURNOVER OSTEOPATHY [None]
  - DYSPNOEA [None]
  - INTERVERTEBRAL DISC PROTRUSION [None]
  - UPPER RESPIRATORY TRACT INFECTION [None]
  - MUSCLE SPASMS [None]
  - FALL [None]
  - DERMATITIS ALLERGIC [None]
  - CARPAL TUNNEL SYNDROME [None]
  - CERVICAL POLYPECTOMY [None]
  - INSOMNIA [None]
  - GASTROOESOPHAGEAL REFLUX DISEASE [None]
  - BRONCHITIS [None]
  - RIB FRACTURE [None]
  - POLYARTHRITIS [None]
  - HALLUCINATION [None]
  - ABDOMINAL PAIN [None]
  - CONTUSION [None]
  - RHINITIS ALLERGIC [None]
  - FAECALOMA [None]
  - LYMPHADENOPATHY [None]
  - IRRITABLE BOWEL SYNDROME [None]
  - HERPES SIMPLEX [None]
